FAERS Safety Report 24930328 (Version 1)
Quarter: 2025Q1

REPORT INFORMATION
  Report Type: Report from Study
  Country: JP (occurrence: JP)
  Receive Date: 20250205
  Receipt Date: 20250205
  Transmission Date: 20250409
  Serious: Yes (Other)
  Sender: RIGEL PHARMACEUTICALS
  Company Number: JP-KISSEI-TL20250065_P_1

PATIENT
  Age: 30 Year
  Sex: Female

DRUGS (1)
  1. FOSTAMATINIB DISODIUM [Suspect]
     Active Substance: FOSTAMATINIB DISODIUM
     Indication: Immune thrombocytopenia
     Dosage: 200 MG, QD
     Route: 048
     Dates: start: 20240927

REACTIONS (2)
  - Cardiac failure [Unknown]
  - Diarrhoea [Unknown]
